FAERS Safety Report 4637696-5 (Version None)
Quarter: 2005Q2

REPORT INFORMATION
  Report Type: 
  Country: None (occurrence: None)
  Receive Date: 20050325
  Receipt Date: 20041124
  Transmission Date: 20051028
  Serious: No
  Sender: FDA-Public Use
  Company Number: USA041184634

PATIENT
  Age: 82 Year
  Sex: Female

DRUGS (4)
  1. FORTEO [Suspect]
     Indication: OSTEOPOROSIS
     Dates: start: 20041103, end: 20041101
  2. LOSARTAN POTASSIUM W/HYDROCHLOROTHIAZIDE [Concomitant]
  3. ATENOLOL [Concomitant]
  4. TYLENOL /USA/ (PARACETAMOL) [Concomitant]

REACTIONS (4)
  - CHEST DISCOMFORT [None]
  - FEELING HOT [None]
  - HEART RATE INCREASED [None]
  - HOT FLUSH [None]
